FAERS Safety Report 10064849 (Version 1)
Quarter: 2014Q2

REPORT INFORMATION
  Report Type: Spontaneous
  Country: US (occurrence: None)
  Receive Date: 20140407
  Receipt Date: 20140407
  Transmission Date: 20141212
  Serious: Yes (Life-Threatening, Hospitalization, Other)
  Sender: FDA-Public Use
  Company Number: None

PATIENT
  Age: 50 Year
  Sex: Male
  Weight: 138.2 kg

DRUGS (1)
  1. OLANZAPINE [Suspect]
     Route: 048
     Dates: start: 20110406, end: 20140331

REACTIONS (4)
  - Inappropriate antidiuretic hormone secretion [None]
  - Fall [None]
  - Head injury [None]
  - Polydipsia [None]
